FAERS Safety Report 16414637 (Version 10)
Quarter: 2020Q4

REPORT INFORMATION
  Report Type: Spontaneous
  Country: US (occurrence: US)
  Receive Date: 20190611
  Receipt Date: 20201105
  Transmission Date: 20210113
  Serious: Yes (Hospitalization, Other)
  Sender: FDA-Public Use
  Company Number: US-PFIZER INC-2018426500

PATIENT
  Age: 78 Year
  Sex: Female
  Weight: 34 kg

DRUGS (6)
  1. LYRICA [Suspect]
     Active Substance: PREGABALIN
     Indication: NEURALGIA
  2. LYRICA [Suspect]
     Active Substance: PREGABALIN
     Indication: TUMOUR PAIN
     Dosage: 150 MG, 2X/DAY
     Route: 048
  3. CELEBREX [Concomitant]
     Active Substance: CELECOXIB
     Indication: TUMOUR PAIN
     Dosage: 100 MG, 2X/DAY (IN THE MORNING AND IN THE EVENING AFTER SUPPER)
     Route: 048
     Dates: start: 2010
  4. CELEBREX [Concomitant]
     Active Substance: CELECOXIB
     Indication: PAIN
  5. MORPHINE [Concomitant]
     Active Substance: MORPHINE
     Dosage: UNK
  6. LYRICA [Suspect]
     Active Substance: PREGABALIN
     Indication: TRIGEMINAL NEURALGIA
     Dosage: 100 MG, 2X/DAY (IN THE MORNING AND IN THE EVENING AFTER SUPPER)
     Route: 048

REACTIONS (4)
  - Mastication disorder [Not Recovered/Not Resolved]
  - Drug ineffective [Unknown]
  - Off label use [Unknown]
  - Gingival disorder [Unknown]

NARRATIVE: CASE EVENT DATE: 2010
